FAERS Safety Report 7468967-5 (Version None)
Quarter: 2011Q2

REPORT INFORMATION
  Report Type: 
  Country: None (occurrence: None)
  Receive Date: 20110429
  Receipt Date: 20110419
  Transmission Date: 20111010
  Serious: Yes (Hospitalization)
  Sender: FDA-Public Use
  Company Number: TPA2011A01718

PATIENT
  Sex: Male

DRUGS (2)
  1. AVANDIA [Suspect]
  2. ACTOS [Suspect]

REACTIONS (1)
  - CARDIAC DISORDER [None]
